FAERS Safety Report 11288208 (Version 2)
Quarter: 2016Q1

REPORT INFORMATION
  Report Type: Spontaneous
  Country: US (occurrence: US)
  Receive Date: 20150721
  Receipt Date: 20160125
  Transmission Date: 20160525
  Serious: No
  Sender: FDA-Public Use
  Company Number: US-UNITED THERAPEUTICS-UNT-2015-002517

PATIENT
  Age: 2 Year
  Sex: Male
  Weight: 12.7 kg

DRUGS (11)
  1. REVATIO [Concomitant]
     Active Substance: SILDENAFIL CITRATE
     Indication: PRODUCT USED FOR UNKNOWN INDICATION
  2. TRACLEER [Concomitant]
     Active Substance: BOSENTAN
     Indication: PRODUCT USED FOR UNKNOWN INDICATION
  3. REMODULIN [Suspect]
     Active Substance: TREPROSTINIL
     Dosage: 0.033?G/KG/MIN,CONTINUING
     Route: 058
     Dates: start: 20150224
  4. REMODULIN [Suspect]
     Active Substance: TREPROSTINIL
     Dosage: UNK
  5. REMODULIN [Suspect]
     Active Substance: TREPROSTINIL
     Dosage: 0.033 ?G/KG/MIN, CONTINUING
     Route: 058
  6. REMODULIN [Suspect]
     Active Substance: TREPROSTINIL
     Dosage: 0.015 ?G/KG/MIN, CONTINUING
     Route: 058
     Dates: start: 20150225
  7. REMODULIN [Suspect]
     Active Substance: TREPROSTINIL
     Dosage: 0.018 ?G/KG/MIN, CONTINUING
     Route: 058
  8. REMODULIN [Suspect]
     Active Substance: TREPROSTINIL
     Dosage: 0.027 ?G/KG/MIN, UNK
     Route: 058
     Dates: start: 20150506
  9. REMODULIN [Suspect]
     Active Substance: TREPROSTINIL
     Indication: PULMONARY ARTERIAL HYPERTENSION
     Dosage: 0.033 ?G/KG/MIN, CONTINUING
     Route: 058
  10. REMODULIN [Suspect]
     Active Substance: TREPROSTINIL
     Indication: PULMONARY HYPERTENSION
     Dosage: 0.030 ?G/KG/MIN, CONTINUING
     Route: 058
     Dates: start: 20150224
  11. REMODULIN [Suspect]
     Active Substance: TREPROSTINIL
     Dosage: 0.036 ?G/KG/MIN, CONTINUING
     Route: 058

REACTIONS (34)
  - Abdominal distension [Unknown]
  - Infusion site haemorrhage [Unknown]
  - Infusion site scar [Unknown]
  - Oxygen saturation decreased [Unknown]
  - Dermatitis contact [Not Recovered/Not Resolved]
  - Infusion site irritation [Unknown]
  - Decreased appetite [Unknown]
  - Brain natriuretic peptide increased [Unknown]
  - Infusion site dryness [Unknown]
  - Infusion site erythema [Unknown]
  - Infusion site pruritus [Unknown]
  - Abdominal discomfort [Unknown]
  - Flushing [Unknown]
  - Nausea [Unknown]
  - Infusion site vesicles [Unknown]
  - Infusion site rash [Unknown]
  - Vomiting [Unknown]
  - Diarrhoea [Unknown]
  - Staphylococcal infection [Recovering/Resolving]
  - Dehydration [Unknown]
  - Lethargy [Unknown]
  - Infusion site reaction [Unknown]
  - Infusion site oedema [Unknown]
  - Infusion site pustule [Unknown]
  - Thrombosis in device [Unknown]
  - Pulmonary arterial pressure increased [Unknown]
  - Device dislocation [Unknown]
  - Infusion site infection [Recovering/Resolving]
  - Hyperhidrosis [Unknown]
  - Injection site discharge [Unknown]
  - Drug dose omission [Unknown]
  - Device issue [Unknown]
  - Infusion site pain [Unknown]
  - Heart rate decreased [Unknown]

NARRATIVE: CASE EVENT DATE: 2015
